FAERS Safety Report 5943958-1 (Version None)
Quarter: 2008Q4

REPORT INFORMATION
  Report Type: 
  Country: None (occurrence: None)
  Receive Date: 20081106
  Receipt Date: 20081103
  Transmission Date: 20090506
  Serious: Yes (Death)
  Sender: FDA-Public Use
  Company Number: CA-WYE-H06289008

PATIENT
  Age: 65 Year
  Sex: Female
  Weight: 61 kg

DRUGS (5)
  1. IBUPROFEN TABLETS [Suspect]
     Indication: PYREXIA
     Dosage: 2 TABLETS DAILY
     Route: 048
     Dates: start: 20080216, end: 20080219
  2. SENOKOT [Concomitant]
     Dosage: UNKNOWN
     Route: 065
  3. SUTENT [Suspect]
     Indication: DIFFUSE LARGE B-CELL LYMPHOMA
     Dosage: 37.5 MG, CYCLIC DAILY
     Route: 048
     Dates: start: 20071126
  4. ACETAMINOPHEN [Suspect]
     Indication: DRUG USE FOR UNKNOWN INDICATION
     Dosage: 500 MG EVERY 4 HOURS
     Route: 048
     Dates: start: 20071215, end: 20071225
  5. OMEPRAZOLE [Concomitant]
     Dosage: UNKNOWN
     Route: 065

REACTIONS (1)
  - HEPATIC FAILURE [None]
